FAERS Safety Report 9384664 (Version 4)
Quarter: 2013Q3

REPORT INFORMATION
  Report Type: Spontaneous
  Country: US (occurrence: US)
  Receive Date: 20130705
  Receipt Date: 20130917
  Transmission Date: 20140515
  Serious: Yes (Hospitalization, Other)
  Sender: FDA-Public Use
  Company Number: US-PFIZER INC-2013198355

PATIENT
  Age: 74 Year
  Sex: Female
  Weight: 77 kg

DRUGS (4)
  1. LYRICA [Suspect]
     Indication: NEURALGIA
     Dosage: 150 MG, 1X/DAY
     Route: 048
     Dates: start: 20130630, end: 20130630
  2. LYRICA [Suspect]
     Indication: NEURALGIA
  3. LYRICA [Suspect]
     Indication: SCIATICA
  4. ADVIL [Concomitant]
     Dosage: UNK

REACTIONS (5)
  - Hypersensitivity [Recovered/Resolved]
  - Anaphylactic shock [Recovered/Resolved]
  - Drug intolerance [Recovered/Resolved]
  - Depressed level of consciousness [Recovered/Resolved]
  - Lethargy [Recovered/Resolved]
